FAERS Safety Report 15823665 (Version 2)
Quarter: 2019Q1

REPORT INFORMATION
  Report Type: Report from Study
  Country: US (occurrence: US)
  Receive Date: 20190114
  Receipt Date: 20190130
  Transmission Date: 20190417
  Serious: Yes (Death)
  Sender: FDA-Public Use
  Company Number: US-EXELIXIS-CABO-19018123

PATIENT
  Sex: Male

DRUGS (1)
  1. CABOMETYX [Suspect]
     Active Substance: CABOZANTINIB S-MALATE
     Indication: ADENOCARCINOMA PANCREAS
     Dosage: 60 MG, QD
     Route: 048
     Dates: start: 20180416, end: 20181219

REACTIONS (2)
  - Malignant neoplasm progression [Fatal]
  - Off label use [Unknown]
